FAERS Safety Report 12279885 (Version 4)
Quarter: 2016Q3

REPORT INFORMATION
  Report Type: Spontaneous
  Country: US (occurrence: US)
  Receive Date: 20160418
  Receipt Date: 20160906
  Transmission Date: 20161109
  Serious: Yes (Other)
  Sender: FDA-Public Use
  Company Number: US-TEVA-644388USA

PATIENT
  Age: 35 Year
  Sex: Female

DRUGS (1)
  1. ZECUITY [Suspect]
     Active Substance: SUMATRIPTAN SUCCINATE
     Route: 062
     Dates: start: 20160315, end: 20160315

REACTIONS (10)
  - Application site pruritus [Unknown]
  - Application site erythema [Unknown]
  - Influenza [Unknown]
  - Chemical injury [Unknown]
  - Application site pain [Unknown]
  - Application site burn [Unknown]
  - Throat tightness [Recovered/Resolved]
  - Application site rash [Unknown]
  - Dyspnoea [Recovered/Resolved]
  - Product leakage [Unknown]

NARRATIVE: CASE EVENT DATE: 201603
